FAERS Safety Report 5083400-9 (Version None)
Quarter: 2006Q3

REPORT INFORMATION
  Report Type: 
  Country: None (occurrence: None)
  Receive Date: 20060818
  Receipt Date: 20060801
  Transmission Date: 20061208
  Serious: Yes (Death, Other)
  Sender: FDA-Public Use
  Company Number: PHBS2006BR12271

PATIENT
  Sex: Male

DRUGS (2)
  1. GLEEVEC [Suspect]
     Indication: HYPEREOSINOPHILIC SYNDROME
     Dosage: UNK, QD
     Route: 048
     Dates: end: 20060101
  2. GLEEVEC [Suspect]
     Dosage: UNK, QD
     Dates: start: 20060101

REACTIONS (3)
  - BLOOD URIC ACID INCREASED [None]
  - EOSINOPHIL COUNT INCREASED [None]
  - TUMOUR LYSIS SYNDROME [None]
